FAERS Safety Report 9178808 (Version 1)
Quarter: 2012Q4

REPORT INFORMATION
  Report Type: 
  Country: US (occurrence: US)
  Receive Date: 20121029
  Receipt Date: 20121029
  Transmission Date: 20130627
  Serious: No
  Sender: FDA-Public Use
  Company Number: US-PFIZER INC-2012266616

PATIENT
  Age: 63 Year
  Sex: Female
  Weight: 58.96 kg

DRUGS (1)
  1. FLECTOR [Suspect]
     Indication: JOINT DISORDER
     Dosage: UNK, 2X/day
     Dates: start: 20121022, end: 20121023

REACTIONS (1)
  - Flatulence [Unknown]
